FAERS Safety Report 22272704 (Version 2)
Quarter: 2023Q2

REPORT INFORMATION
  Report Type: Report from Study
  Country: CA (occurrence: CA)
  Receive Date: 20230502
  Receipt Date: 20230622
  Transmission Date: 20230721
  Serious: Yes (Other)
  Sender: FDA-Public Use
  Company Number: CA-TAKEDA-2023TUS029057

PATIENT
  Age: 56 Year
  Sex: Female

DRUGS (5)
  1. VEDOLIZUMAB [Suspect]
     Active Substance: VEDOLIZUMAB
     Indication: Colitis ulcerative
     Dosage: 300 MILLIGRAM
     Route: 042
     Dates: start: 20230314
  2. VEDOLIZUMAB [Suspect]
     Active Substance: VEDOLIZUMAB
     Dosage: 300 MILLIGRAM, Q4WEEKS
     Route: 042
     Dates: start: 20230616
  3. TYLENOL [Suspect]
     Active Substance: ACETAMINOPHEN
     Indication: Abdominal discomfort
     Dosage: UNK
     Route: 065
  4. Cortiment [Concomitant]
     Dosage: 5 MILLIGRAM
     Dates: start: 20221228
  5. Salofalk [Concomitant]
     Dosage: UNK

REACTIONS (11)
  - Rectal haemorrhage [Unknown]
  - Haematochezia [Unknown]
  - Influenza like illness [Unknown]
  - Chest discomfort [Unknown]
  - Frequent bowel movements [Unknown]
  - Abdominal discomfort [Unknown]
  - Off label use [Unknown]
  - Dyspnoea [Unknown]
  - Muscle spasms [Unknown]
  - Flatulence [Unknown]
  - Arthralgia [Unknown]

NARRATIVE: CASE EVENT DATE: 20230616
